FAERS Safety Report 7266936-1 (Version None)
Quarter: 2011Q1

REPORT INFORMATION
  Report Type: 
  Country: None (occurrence: None)
  Receive Date: 20110121
  Receipt Date: 20110110
  Transmission Date: 20110831
  Serious: Yes (Other)
  Sender: FDA-Public Use
  Company Number: 025182

PATIENT
  Sex: Male

DRUGS (2)
  1. CIMZIA [Suspect]
     Indication: CROHN'S DISEASE
     Dosage: (SUBCUTANEOUS) (SUBCUTANEOUS)
     Route: 058
     Dates: start: 20090501, end: 20091001
  2. CIMZIA [Suspect]
     Indication: CROHN'S DISEASE
     Dosage: (SUBCUTANEOUS) (SUBCUTANEOUS)
     Route: 058
     Dates: start: 20100701, end: 20101001

REACTIONS (3)
  - COLECTOMY [None]
  - COLOSTOMY [None]
  - HERNIA REPAIR [None]
